FAERS Safety Report 7458544-4 (Version None)
Quarter: 2011Q2

REPORT INFORMATION
  Report Type: 
  Country: None (occurrence: None)
  Receive Date: 20110504
  Receipt Date: 20110421
  Transmission Date: 20111010
  Serious: Yes (Hospitalization)
  Sender: FDA-Public Use
  Company Number: US-ACTELION-A-US2011-47879

PATIENT

DRUGS (3)
  1. VELETRI [Suspect]
     Dosage: 15 NG/KG, PER MIN
     Route: 042
     Dates: start: 20110401
  2. TRACLEER [Concomitant]
     Indication: PULMONARY ARTERIAL HYPERTENSION
     Dosage: UNK
     Route: 048
     Dates: start: 20020101
  3. VELETRI [Suspect]
     Indication: PULMONARY ARTERIAL HYPERTENSION
     Dosage: 19 NG/KG, PER MIN
     Route: 042
     Dates: start: 20110101, end: 20110401

REACTIONS (2)
  - BLOOD POTASSIUM DECREASED [None]
  - NAUSEA [None]
